FAERS Safety Report 19770742 (Version 3)
Quarter: 2021Q3

REPORT INFORMATION
  Report Type: Report from Study
  Country: US (occurrence: US)
  Receive Date: 20210831
  Receipt Date: 20210929
  Transmission Date: 20211014
  Serious: Yes (Hospitalization)
  Sender: FDA-Public Use
  Company Number: US-APELLIS-00826

PATIENT
  Age: 57 Year
  Sex: Male

DRUGS (5)
  1. 4175930 (GLOBALC3MAR21): AIMOVIG [Concomitant]
     Indication: PRODUCT USED FOR UNKNOWN INDICATION
  2. EMPAVELI [Suspect]
     Active Substance: PEGCETACOPLAN
     Indication: PAROXYSMAL NOCTURNAL HAEMOGLOBINURIA
     Route: 058
     Dates: start: 20210629
  3. 1262395 (GLOBALC3MAR21): LISINOPRIL [Concomitant]
     Indication: PRODUCT USED FOR UNKNOWN INDICATION
  4. 1268236 (GLOBALC3MAR21): OMEPRAZOLE [Concomitant]
     Indication: PRODUCT USED FOR UNKNOWN INDICATION
  5. 1326887 (GLOBALC3MAR21): LORATADINE [Concomitant]
     Indication: PRODUCT USED FOR UNKNOWN INDICATION

REACTIONS (11)
  - Migraine [Not Recovered/Not Resolved]
  - Back pain [Unknown]
  - Incorrect dose administered [Unknown]
  - Device use error [Recovered/Resolved]
  - Infusion site cyst [Recovered/Resolved]
  - Nausea [Unknown]
  - Vomiting [Unknown]
  - Injection site pain [Recovered/Resolved]
  - Fatigue [Unknown]
  - Product leakage [Unknown]
  - Abdominal pain [Recovering/Resolving]

NARRATIVE: CASE EVENT DATE: 20210629
